FAERS Safety Report 24662623 (Version 5)
Quarter: 2025Q3

REPORT INFORMATION
  Report Type: Spontaneous
  Country: US (occurrence: US)
  Receive Date: 20241126
  Receipt Date: 20250810
  Transmission Date: 20251020
  Serious: No
  Sender: ALEXION PHARMACEUTICALS
  Company Number: US-AstraZeneca-CH-00755555AP

PATIENT
  Sex: Female

DRUGS (9)
  1. BYDUREON BCISE [Suspect]
     Active Substance: EXENATIDE
  2. BYDUREON BCISE [Suspect]
     Active Substance: EXENATIDE
  3. BYDUREON BCISE [Suspect]
     Active Substance: EXENATIDE
  4. BYDUREON BCISE [Suspect]
     Active Substance: EXENATIDE
  5. BYDUREON BCISE [Suspect]
     Active Substance: EXENATIDE
  6. BYDUREON BCISE [Suspect]
     Active Substance: EXENATIDE
  7. BYDUREON BCISE [Suspect]
     Active Substance: EXENATIDE
  8. BYDUREON BCISE [Suspect]
     Active Substance: EXENATIDE
  9. BYDUREON BCISE [Suspect]
     Active Substance: EXENATIDE

REACTIONS (5)
  - Injection site pain [Unknown]
  - Device leakage [Unknown]
  - Incorrect dose administered by device [Unknown]
  - Needle issue [Unknown]
  - Device malfunction [Unknown]
